FAERS Safety Report 8182924-5 (Version None)
Quarter: 2012Q1

REPORT INFORMATION
  Report Type: 
  Country: None (occurrence: None)
  Receive Date: 20120305
  Receipt Date: 20120229
  Transmission Date: 20120608
  Serious: Yes (Hospitalization)
  Sender: FDA-Public Use
  Company Number: CA-AMGEN-CANSP2011016175

PATIENT
  Age: 76 Year
  Sex: Female
  Weight: 80 kg

DRUGS (16)
  1. DOXORUBICIN HCL [Concomitant]
     Dosage: 50 MG/M2, PER CHEMO REGIM
     Route: 042
  2. ONDANSETRON [Concomitant]
     Route: 042
  3. METOPROLOL SUCCINATE [Concomitant]
     Route: 048
  4. VITAMIN D [Concomitant]
  5. RITUXIMAB [Concomitant]
     Dosage: 375 MG/M2, PER CHEMO REGIM
     Route: 042
  6. DIPHENHYDRAMINE HCL [Concomitant]
     Route: 042
  7. DETROL [Concomitant]
  8. ACETAMINOPHEN [Concomitant]
     Route: 048
  9. DEXAMETHASONE [Concomitant]
     Route: 042
  10. MULTIVITAMIN                       /00097801/ [Concomitant]
  11. MICARDIS [Concomitant]
     Route: 048
  12. CYCLOPHOSPHAMIDE [Concomitant]
     Dosage: 750 MG/M2, PER CHEMO REGIM
     Route: 042
  13. NEUPOGEN [Suspect]
     Indication: CHEMOTHERAPY
     Dosage: 300 MUG, PER CHEMO REGIM
     Route: 058
     Dates: start: 20110314
  14. VINCRISTINE [Concomitant]
     Dosage: 1.4 MG/M2, PER CHEMO REGIM
     Route: 042
  15. PREDNISONE TAB [Concomitant]
     Dosage: 100 MG, PER CHEMO REGIM
     Route: 048
  16. VITAMIN E                          /00110501/ [Concomitant]

REACTIONS (1)
  - STRESS CARDIOMYOPATHY [None]
